FAERS Safety Report 9515220 (Version 1)
Quarter: 2013Q1

REPORT INFORMATION
  Report Type: Spontaneous
  Country: US (occurrence: None)
  Receive Date: 20130305
  Receipt Date: 20130305
  Transmission Date: 20140127
  Serious: Yes (Other)
  Sender: FDA-Public Use
  Company Number: 163-21880-12122725

PATIENT
  Age: 84 Year
  Sex: Male
  Weight: 89.36 kg

DRUGS (16)
  1. REVLIMID [Suspect]
     Indication: MYELODYSPLASTIC SYNDROME
     Dosage: 1 IN 1 D
     Route: 048
     Dates: start: 201209, end: 20121219
  2. LEVOTHYROID [Concomitant]
  3. LANSOPRAZOLE [Concomitant]
  4. NORVASC [Concomitant]
  5. ECOTRIN [Concomitant]
  6. METOPROLOL ER [Concomitant]
  7. OXYBUTYNIN [Concomitant]
  8. LASIX [Concomitant]
  9. OSCAL [Concomitant]
  10. CENTRUM SILVER [Concomitant]
  11. ALTACE [Concomitant]
  12. ZOCOR [Concomitant]
  13. VFITAMIN B6 [Concomitant]
  14. VITAMIN B12 [Concomitant]
  15. VITAMIN B3 [Concomitant]
  16. COMBIVENT [Concomitant]

REACTIONS (3)
  - Anaemia [None]
  - Abdominal pain upper [None]
  - Diarrhoea [None]
